FAERS Safety Report 11299086 (Version 1)
Quarter: 2015Q3

REPORT INFORMATION
  Report Type: Spontaneous
  Country: US (occurrence: US)
  Receive Date: 20150722
  Receipt Date: 20150722
  Transmission Date: 20151125
  Serious: No
  Sender: FDA-Public Use
  Company Number: US-ELI_LILLY_AND_COMPANY-US201203001105

PATIENT
  Sex: Male
  Weight: 104 kg

DRUGS (13)
  1. DDAVP [Concomitant]
     Active Substance: DESMOPRESSIN ACETATE
     Dosage: 0.2 MG, BID
  2. SYNTHROID [Concomitant]
     Active Substance: LEVOTHYROXINE SODIUM
  3. VITAMIN D [Concomitant]
     Active Substance: CHOLECALCIFEROL
  4. HUMATROPE [Suspect]
     Active Substance: SOMATROPIN
     Indication: HYPOPITUITARISM
     Dosage: 0.25 MG, QD
     Route: 058
     Dates: start: 20120111, end: 20120123
  5. ASA [Concomitant]
     Active Substance: ASPIRIN
     Dosage: 325 MG, UNK
  6. AMBIEN [Concomitant]
     Active Substance: ZOLPIDEM TARTRATE
  7. TESTOSTERONE. [Concomitant]
     Active Substance: TESTOSTERONE
  8. HYDROCODONE [Concomitant]
     Active Substance: HYDROCODONE
     Dosage: UNK, UNKNOWN
  9. CORTEF [Concomitant]
     Active Substance: HYDROCORTISONE
     Dosage: 25 MG, QD
  10. SANNAX [Concomitant]
  11. HUMATROPE [Suspect]
     Active Substance: SOMATROPIN
     Dosage: 0.025 MG, QD
     Route: 058
  12. DESMOPRESSIN [Concomitant]
     Active Substance: DESMOPRESSIN
     Dosage: UNK, UNKNOWN
  13. PROMETHAZINE [Concomitant]
     Active Substance: PROMETHAZINE\PROMETHAZINE HYDROCHLORIDE
     Dosage: 12.5 MG, UNK

REACTIONS (3)
  - Nausea [Recovered/Resolved]
  - Headache [Recovered/Resolved]
  - Blood potassium decreased [Unknown]
